FAERS Safety Report 21998794 (Version 1)
Quarter: 2023Q1

REPORT INFORMATION
  Report Type: Spontaneous
  Country: PL (occurrence: PL)
  Receive Date: 20230216
  Receipt Date: 20230216
  Transmission Date: 20230417
  Serious: Yes (Hospitalization)
  Sender: FDA-Public Use
  Company Number: PL-AMGEN-POLSP2022069010

PATIENT
  Age: 16 Year
  Sex: Female

DRUGS (7)
  1. ROMIPLOSTIM [Suspect]
     Active Substance: ROMIPLOSTIM
     Indication: Immune thrombocytopenia
     Dosage: 5 MICROGRAM PER KILOGRAM
     Route: 058
     Dates: start: 20211020
  2. ROMIPLOSTIM [Suspect]
     Active Substance: ROMIPLOSTIM
     Dosage: 3 MICROGRAM PER KILOGRAM
     Route: 058
  3. ROMIPLOSTIM [Suspect]
     Active Substance: ROMIPLOSTIM
     Dosage: 5 MICROGRAM PER KILOGRAM
     Route: 058
  4. ROMIPLOSTIM [Suspect]
     Active Substance: ROMIPLOSTIM
     Dosage: 5 MICROGRAM PER KILOGRAM
     Route: 058
  5. METHYLPREDNISOLONE [Concomitant]
     Active Substance: METHYLPREDNISOLONE
     Indication: Immune thrombocytopenia
     Dosage: UNK
     Route: 040
     Dates: start: 2021
  6. PREDNISONE [Concomitant]
     Active Substance: PREDNISONE
     Indication: Immune thrombocytopenia
     Dosage: 2 MILLIGRAM PER KILOGRAM
     Dates: start: 2021
  7. PREDNISONE [Concomitant]
     Active Substance: PREDNISONE
     Dosage: 8 MILLIGRAM PER KILOGRAM

REACTIONS (4)
  - Platelet count decreased [Not Recovered/Not Resolved]
  - Drug effect less than expected [Unknown]
  - Off label use [Unknown]
  - Upper respiratory tract infection [Unknown]

NARRATIVE: CASE EVENT DATE: 20210101
